FAERS Safety Report 11215018 (Version 1)
Quarter: 2015Q2

REPORT INFORMATION
  Report Type: Spontaneous
  Country: US (occurrence: None)
  Receive Date: 20150622
  Receipt Date: 20150622
  Transmission Date: 20150821
  Serious: Yes (Life-Threatening, Disabling)
  Sender: FDA-Public Use
  Company Number: None

PATIENT
  Age: 59 Year
  Sex: Female
  Weight: 60.78 kg

DRUGS (2)
  1. BLOOD PRESSURE MEDICATION [Concomitant]
     Active Substance: UNSPECIFIED INGREDIENT
  2. VALSARTAN 160 MG SANDOZ [Suspect]
     Active Substance: VALSARTAN
     Indication: BLOOD PRESSURE INCREASED
     Dosage: 1 PILL
     Route: 048

REACTIONS (9)
  - Disturbance in attention [None]
  - Nervous system disorder [None]
  - Eyelid disorder [None]
  - Product quality issue [None]
  - Headache [None]
  - Thinking abnormal [None]
  - Blood pressure increased [None]
  - Eyelid ptosis [None]
  - Incoherent [None]

NARRATIVE: CASE EVENT DATE: 20150521
